FAERS Safety Report 10735133 (Version 1)
Quarter: 2015Q1

REPORT INFORMATION
  Report Type: Spontaneous
  Country: US (occurrence: US)
  Receive Date: 20150125
  Receipt Date: 20150125
  Transmission Date: 20150721
  Serious: No
  Sender: FDA-Public Use
  Company Number: US-ASTRAZENECA-2015SE04362

PATIENT
  Age: 630 Month
  Sex: Male
  Weight: 64.4 kg

DRUGS (4)
  1. PEPCID [Concomitant]
     Active Substance: FAMOTIDINE
     Dates: start: 20150109
  2. NEXIUM [Suspect]
     Active Substance: ESOMEPRAZOLE MAGNESIUM
     Indication: GASTROOESOPHAGEAL REFLUX DISEASE
     Route: 048
     Dates: start: 201312, end: 201312
  3. PEPTO-BISMOL [Concomitant]
     Active Substance: BISMUTH SUBSALICYLATE\CALCIUM CARBONATE
     Indication: GASTROOESOPHAGEAL REFLUX DISEASE
     Dosage: 2 TABLESPOONS DAILY
     Dates: start: 20150110
  4. CALCIUM CARBONATE. [Concomitant]
     Active Substance: CALCIUM CARBONATE
     Dosage: 1 TABLET DAILY
     Dates: start: 20150107, end: 20150108

REACTIONS (6)
  - Gastrooesophageal reflux disease [Unknown]
  - Weight decreased [Unknown]
  - Hypophagia [Unknown]
  - Drug dispensing error [Unknown]
  - Insomnia [Unknown]
  - Intentional product misuse [Unknown]

NARRATIVE: CASE EVENT DATE: 201312
